FAERS Safety Report 6731687-6 (Version None)
Quarter: 2010Q2

REPORT INFORMATION
  Report Type: 
  Country: None (occurrence: None)
  Receive Date: 20100518
  Receipt Date: 20100518
  Transmission Date: 20101027
  Serious: No
  Sender: FDA-Public Use
  Company Number: None

PATIENT
  Age: 42 Year
  Sex: Female
  Weight: 56.6996 kg

DRUGS (1)
  1. NEXIUM [Suspect]
     Dosage: 40 MG ONCE A DAY PO
     Route: 048
     Dates: start: 20100513, end: 20100516

REACTIONS (3)
  - ARTHRALGIA [None]
  - HEADACHE [None]
  - MYALGIA [None]
